FAERS Safety Report 9201486 (Version 1)
Quarter: 2013Q2

REPORT INFORMATION
  Report Type: Spontaneous
  Country: ES (occurrence: ES)
  Receive Date: 20130401
  Receipt Date: 20130401
  Transmission Date: 20140414
  Serious: Yes (Hospitalization, Other)
  Sender: FDA-Public Use
  Company Number: ES-009507513-1303ESP010919

PATIENT
  Sex: 0

DRUGS (10)
  1. RIBAVIRIN [Suspect]
     Indication: HEPATITIS C
     Dosage: 800 TOTAL DAILY DOSE
     Route: 048
  2. RIBAVIRIN [Suspect]
     Dosage: 600MG TOTAL DAILY DOSE
     Route: 048
  3. RIBAVIRIN [Suspect]
     Dosage: UNK
     Route: 048
  4. PEGASYS [Suspect]
     Indication: HEPATITIS C
     Dosage: 180 MICROGRAM, QW
  5. PEGASYS [Suspect]
     Dosage: 135 MICROGRAM, QW
  6. TELAPREVIR [Suspect]
     Indication: HEPATITIS C
  7. CYCLOSPORINE [Concomitant]
     Indication: AUTOIMMUNE HEPATITIS
     Dosage: 50 MG, Q12H
  8. CYCLOSPORINE [Concomitant]
     Dosage: 25 MG, QAM
  9. AZATHIOPRINE [Concomitant]
     Indication: AUTOIMMUNE HEPATITIS
     Dosage: 75MG DAILY
  10. PREDNISONE [Concomitant]
     Indication: AUTOIMMUNE HEPATITIS
     Dosage: 5MG DAILY
     Route: 048

REACTIONS (5)
  - Pancytopenia [Unknown]
  - Anaemia [Unknown]
  - Pyrexia [Not Recovered/Not Resolved]
  - Rash maculo-papular [Unknown]
  - Therapeutic response decreased [Unknown]
